FAERS Safety Report 5477730-6 (Version None)
Quarter: 2007Q4

REPORT INFORMATION
  Report Type: 
  Country: None (occurrence: None)
  Receive Date: 20071002
  Receipt Date: 20070921
  Transmission Date: 20080405
  Serious: Yes (Disabling)
  Sender: FDA-Public Use
  Company Number: GXKR2007GB08265

PATIENT
  Age: 67 Year
  Sex: Female
  Weight: 94.8 kg

DRUGS (6)
  1. SIMVASTATIN [Suspect]
     Indication: LIPIDS INCREASED
     Dosage: 50 MG, ORAL; 40 MG
     Route: 048
     Dates: start: 20070403, end: 20070420
  2. SIMVASTATIN [Suspect]
     Indication: LIPIDS INCREASED
     Dosage: 50 MG, ORAL; 40 MG
     Route: 048
     Dates: start: 20070422, end: 20070423
  3. ASPIRIN [Concomitant]
  4. COMBIVENT         (IPRATROPRIUM BROMIDE, SALBUTAMOL SULFATE) [Concomitant]
  5. RAMIPRIL [Concomitant]
  6. RIMONABANT          (RIMONABANT) [Concomitant]

REACTIONS (3)
  - EMOTIONAL DISTRESS [None]
  - HEADACHE [None]
  - SYNCOPE [None]
